FAERS Safety Report 6064954-2 (Version None)
Quarter: 2009Q1

REPORT INFORMATION
  Report Type: 
  Country: None (occurrence: None)
  Receive Date: 20090204
  Receipt Date: 20090129
  Transmission Date: 20090719
  Serious: Yes (Other)
  Sender: FDA-Public Use
  Company Number: ES-AVENTIS-200911041GDDC

PATIENT
  Age: 80 Year
  Sex: Male

DRUGS (6)
  1. ARAVA [Suspect]
     Indication: RHEUMATOID ARTHRITIS
     Dosage: DOSE: UNK
     Route: 048
     Dates: start: 20080701, end: 20081027
  2. METHOTREXATE [Suspect]
     Indication: RHEUMATOID ARTHRITIS
     Dosage: DOSE: UNK
     Dates: start: 20080101, end: 20081027
  3. CITALOPRAM HYDROBROMIDE [Concomitant]
     Indication: ABNORMAL BEHAVIOUR
     Dosage: DOSE: ORAL
  4. FENTANYL-75 [Concomitant]
     Indication: RHEUMATOID ARTHRITIS
     Dosage: DOSE: UNK
     Route: 062
  5. ADIRO [Concomitant]
     Indication: ABNORMAL BEHAVIOUR
     Dosage: DOSE: UNK
     Route: 048
  6. ASTUDAL [Concomitant]
     Dosage: DOSE: UNK
     Route: 048

REACTIONS (6)
  - APHTHOUS STOMATITIS [None]
  - DRUG INTERACTION [None]
  - DYSPHAGIA [None]
  - LEUKOPENIA [None]
  - THROMBOCYTOPENIA [None]
  - VOMITING [None]
